FAERS Safety Report 17262800 (Version 1)
Quarter: 2020Q1

REPORT INFORMATION
  Report Type: Spontaneous
  Country: US (occurrence: US)
  Receive Date: 20200110
  Receipt Date: 20200110
  Transmission Date: 20200409
  Serious: Yes (Hospitalization)
  Sender: FDA-Public Use
  Company Number: None

PATIENT
  Age: 76 Year
  Sex: Female

DRUGS (10)
  1. DOFETILIDE. [Suspect]
     Active Substance: DOFETILIDE
     Indication: ATRIAL FIBRILLATION
     Route: 048
     Dates: start: 20191218
  2. DOXYCYCL MONO [Concomitant]
  3. WIXELA INHUB [Concomitant]
     Active Substance: FLUTICASONE PROPIONATE\SALMETEROL XINAFOATE
  4. REPATHA [Concomitant]
     Active Substance: EVOLOCUMAB
  5. LORAZEPAM. [Concomitant]
     Active Substance: LORAZEPAM
  6. NAPROXEN. [Concomitant]
     Active Substance: NAPROXEN
  7. ALPRAZOLAM. [Concomitant]
     Active Substance: ALPRAZOLAM
  8. TRAZODONE [Concomitant]
     Active Substance: TRAZODONE HYDROCHLORIDE
  9. ALBUTEROL AER HFA [Concomitant]
  10. PREDNISONE. [Concomitant]
     Active Substance: PREDNISONE

REACTIONS (3)
  - Gastrooesophageal reflux disease [None]
  - Fatigue [None]
  - Arthralgia [None]

NARRATIVE: CASE EVENT DATE: 20191230
